FAERS Safety Report 4335686-3 (Version None)
Quarter: 2004Q2

REPORT INFORMATION
  Report Type: 
  Country: None (occurrence: None)
  Receive Date: 20040409
  Receipt Date: 20031217
  Transmission Date: 20050107
  Serious: Yes (Other)
  Sender: FDA-Public Use
  Company Number: FR-GLAXOSMITHKLINE-B0318089A

PATIENT
  Age: 36 Year
  Sex: Male

DRUGS (1)
  1. TRIZIVIR [Suspect]
     Indication: HIV INFECTION
     Dosage: 1TAB TWICE PER DAY
     Route: 048
     Dates: start: 20031213

REACTIONS (5)
  - FEELING ABNORMAL [None]
  - MUSCLE CRAMP [None]
  - MUSCULOSKELETAL STIFFNESS [None]
  - PHARYNGOLARYNGEAL PAIN [None]
  - PYREXIA [None]
